FAERS Safety Report 5118956-0 (Version None)
Quarter: 2006Q3

REPORT INFORMATION
  Report Type: 
  Country: None (occurrence: None)
  Receive Date: 20060925
  Receipt Date: 20060912
  Transmission Date: 20061208
  Serious: Yes (Hospitalization, Other)
  Sender: FDA-Public Use
  Company Number: 2006BH011834

PATIENT
  Age: 21 Month
  Sex: Male
  Weight: 11.7 kg

DRUGS (4)
  1. IVEEGAM [Suspect]
     Indication: KAWASAKI'S DISEASE
     Dosage: 2; IV
     Route: 042
     Dates: start: 20060304, end: 20060305
  2. PULSE STEROIDS [Concomitant]
  3. REMICADE [Concomitant]
  4. ASPIRIN [Concomitant]

REACTIONS (1)
  - THERAPY NON-RESPONDER [None]
